FAERS Safety Report 8342191-6 (Version None)
Quarter: 2012Q2

REPORT INFORMATION
  Report Type: 
  Country: None (occurrence: None)
  Receive Date: 20120507
  Receipt Date: 20110129
  Transmission Date: 20120825
  Serious: Yes (Hospitalization, Other)
  Sender: FDA-Public Use
  Company Number: PHHY2011AE116469

PATIENT
  Sex: Female

DRUGS (2)
  1. FOLIC ACID [Concomitant]
  2. DEFERASIROX [Suspect]
     Indication: CHELATION THERAPY
     Dosage: 625 MG, DAILY
     Route: 048
     Dates: start: 20061201

REACTIONS (6)
  - VOMITING [None]
  - LOSS OF CONSCIOUSNESS [None]
  - NAUSEA [None]
  - HEADACHE [None]
  - HYPOTONIA [None]
  - SERUM FERRITIN INCREASED [None]
